FAERS Safety Report 16738799 (Version 3)
Quarter: 2020Q1

REPORT INFORMATION
  Report Type: Spontaneous
  Country: US (occurrence: US)
  Receive Date: 20190826
  Receipt Date: 20200204
  Transmission Date: 20200409
  Serious: No
  Sender: FDA-Public Use
  Company Number: US-BIOGEN-2019BI00768784

PATIENT
  Sex: Male

DRUGS (2)
  1. TECFIDERA [Suspect]
     Active Substance: DIMETHYL FUMARATE
     Indication: MULTIPLE SCLEROSIS
     Dosage: PATIENT ON SPECIAL INSTRUCTIONS FROM HCP. 120 MG PO Q HS X 7 DAYS, 120 MG PA BID X 7 DAYS, 120 MG...
     Route: 048
     Dates: start: 20190722
  2. TECFIDERA [Suspect]
     Active Substance: DIMETHYL FUMARATE
     Route: 048

REACTIONS (10)
  - Dizziness [Unknown]
  - Influenza [Recovered/Resolved with Sequelae]
  - Mood altered [Unknown]
  - Abdominal pain upper [Not Recovered/Not Resolved]
  - Off label use [Not Recovered/Not Resolved]
  - Body temperature increased [Recovered/Resolved]
  - Flatulence [Unknown]
  - Fatigue [Unknown]
  - Sleep disorder [Not Recovered/Not Resolved]
  - Diarrhoea [Not Recovered/Not Resolved]
